FAERS Safety Report 14436538 (Version 1)
Quarter: 2018Q1

REPORT INFORMATION
  Report Type: Other
  Country: US (occurrence: US)
  Receive Date: 20180125
  Receipt Date: 20180125
  Transmission Date: 20180509
  Serious: No
  Sender: FDA-Public Use
  Company Number: US-UNITED THERAPEUTICS-UNT-2017-009421

PATIENT
  Sex: Female
  Weight: 80.27 kg

DRUGS (7)
  1. TYVASO [Suspect]
     Active Substance: TREPROSTINIL
     Dosage: UNK
  2. TYVASO [Suspect]
     Active Substance: TREPROSTINIL
     Dosage: 24 ?G, QID
  3. LISINOPRIL. [Suspect]
     Active Substance: LISINOPRIL
     Indication: PRODUCT USED FOR UNKNOWN INDICATION
     Dosage: UNK
     Route: 065
     Dates: end: 2017
  4. TYVASO [Suspect]
     Active Substance: TREPROSTINIL
     Dosage: 18 ?G, UNK
  5. TYVASO [Suspect]
     Active Substance: TREPROSTINIL
     Dosage: UNK
  6. TYVASO [Suspect]
     Active Substance: TREPROSTINIL
     Indication: PULMONARY ARTERIAL HYPERTENSION
     Dosage: 18-54 MICROGRAMS, QID
     Dates: start: 20170612, end: 2017
  7. NIFEDIPINE. [Suspect]
     Active Substance: NIFEDIPINE
     Indication: PRODUCT USED FOR UNKNOWN INDICATION
     Dosage: UNK
     Route: 065
     Dates: end: 2017

REACTIONS (12)
  - Fatigue [Unknown]
  - Off label use [Unknown]
  - Cough [Unknown]
  - Blood pressure increased [Unknown]
  - Chest pain [Unknown]
  - Pharyngeal oedema [Unknown]
  - Chest discomfort [Unknown]
  - Constipation [Unknown]
  - Dyspnoea [Unknown]
  - Eye haemorrhage [Unknown]
  - Nausea [Unknown]
  - Throat irritation [Unknown]

NARRATIVE: CASE EVENT DATE: 2017
